FAERS Safety Report 9119108 (Version 2)
Quarter: 2013Q1

REPORT INFORMATION
  Report Type: Spontaneous
  Country: BR (occurrence: BR)
  Receive Date: 20130226
  Receipt Date: 20130304
  Transmission Date: 20140127
  Serious: Yes (Death, Life-Threatening, Hospitalization)
  Sender: FDA-Public Use
  Company Number: PHHY2013BR018008

PATIENT
  Sex: Female

DRUGS (5)
  1. EVEROLIMUS [Suspect]
     Indication: BREAST CANCER METASTATIC
     Dosage: 10 MG, DAILY
     Route: 048
     Dates: start: 201206, end: 201210
  2. ATENOLOL [Concomitant]
     Indication: HYPERTENSION
  3. MODURETIC [Concomitant]
     Indication: HYPERTENSION
  4. ACETYLSALICYLIC ACID [Concomitant]
     Indication: HYPERTENSION
  5. EXEMESTANE [Concomitant]

REACTIONS (7)
  - Respiratory failure [Fatal]
  - Dyspnoea [Fatal]
  - Multi-organ failure [Fatal]
  - Pyrexia [Fatal]
  - Cough [Fatal]
  - Pneumocystis jirovecii pneumonia [Unknown]
  - Blood lactate dehydrogenase increased [Unknown]
